FAERS Safety Report 5864495-9 (Version None)
Quarter: 2008Q3

REPORT INFORMATION
  Report Type: 
  Country: None (occurrence: None)
  Receive Date: 20080829
  Receipt Date: 20080708
  Transmission Date: 20090109
  Serious: No
  Sender: FDA-Public Use
  Company Number: US-ABBOTT-08P-163-0461349-00

PATIENT
  Sex: Female
  Weight: 73.548 kg

DRUGS (14)
  1. SIMCOR [Suspect]
     Indication: BLOOD CHOLESTEROL INCREASED
     Dosage: 500/20 MG AT NIGHT
     Route: 048
     Dates: start: 20080514, end: 20080610
  2. SIMCOR [Suspect]
     Dosage: 1000/40 MG AT BEDTIME
     Dates: start: 20080611
  3. IBUPROFEN [Concomitant]
     Indication: PROPHYLAXIS
     Route: 048
  4. IBUPROFEN [Concomitant]
     Indication: FLUSHING
  5. METAXALONE [Concomitant]
     Indication: MUSCLE RELAXANT THERAPY
     Route: 048
  6. NABUMETONE [Concomitant]
     Indication: DRUG USE FOR UNKNOWN INDICATION
     Route: 048
  7. VENLAFAXINE HCL [Concomitant]
     Indication: DRUG USE FOR UNKNOWN INDICATION
     Route: 048
  8. TRIAMTERENE [Concomitant]
     Indication: FLUID RETENTION
     Dosage: DAILY
     Route: 048
  9. POTASSIUM CHLORIDE [Concomitant]
     Indication: FLUID RETENTION
     Route: 048
  10. ESTRADIOL [Concomitant]
     Indication: POSTMENOPAUSE
     Route: 061
  11. ESTRADIOL [Concomitant]
     Indication: OSTEOPENIA
  12. FISH OIL [Concomitant]
     Indication: DRUG USE FOR UNKNOWN INDICATION
     Route: 048
  13. CALCIUM-SANDOZ [Concomitant]
     Indication: OSTEOPENIA
     Route: 048
  14. ERGOCALCIFEROL [Concomitant]
     Indication: DRUG USE FOR UNKNOWN INDICATION

REACTIONS (5)
  - FLUSHING [None]
  - GENERALISED ERYTHEMA [None]
  - MUSCLE SPASMS [None]
  - PRURITUS [None]
  - URTICARIA [None]
